FAERS Safety Report 16744292 (Version 1)
Quarter: 2019Q3

REPORT INFORMATION
  Report Type: Spontaneous
  Country: FR (occurrence: FR)
  Receive Date: 20190827
  Receipt Date: 20190827
  Transmission Date: 20191005
  Serious: Yes (Death)
  Sender: FDA-Public Use
  Company Number: PHHY2019FR198872

PATIENT
  Age: 44 Year
  Sex: Male

DRUGS (1)
  1. RITALINE [Suspect]
     Active Substance: METHYLPHENIDATE HYDROCHLORIDE
     Indication: PRODUCT USED FOR UNKNOWN INDICATION
     Route: 042

REACTIONS (4)
  - Endocarditis [Fatal]
  - Cachexia [Fatal]
  - Bacteraemia [Fatal]
  - Drug use disorder [Fatal]
